FAERS Safety Report 9352707 (Version 4)
Quarter: 2013Q4

REPORT INFORMATION
  Report Type: Report from Study
  Country: US (occurrence: US)
  Receive Date: 20130618
  Receipt Date: 20131001
  Transmission Date: 20140711
  Serious: Yes (Hospitalization)
  Sender: FDA-Public Use
  Company Number: US-PFIZER INC-2013175427

PATIENT
  Age: 64 Year
  Sex: Female
  Weight: 62.13 kg

DRUGS (12)
  1. IRINOTECAN HCL [Suspect]
     Indication: COLORECTAL CANCER METASTATIC
     Dosage: 180 MG/M2 DAY 1 EVERY 14 DAYS
     Route: 042
     Dates: start: 20130227, end: 20130515
  2. FLUOROURACIL [Suspect]
     Indication: COLORECTAL CANCER METASTATIC
     Dosage: 400 MG/M2 ON DAY 1 EVERY 14 DAYS
     Route: 040
     Dates: start: 20120214, end: 20130415
  3. FLUOROURACIL [Suspect]
     Dosage: 2400 MG/M2 ON DAYS 1 AND 2 EVERY 14 DAYS
     Route: 042
     Dates: start: 20120214, end: 20130415
  4. FOLINIC ACID [Suspect]
     Indication: COLORECTAL CANCER METASTATIC
     Dosage: 400 MG/M2 DAY 1 EVERY 14 DAYS
     Dates: start: 20130227, end: 20130415
  5. BLINDED THERAPY [Suspect]
     Indication: COLORECTAL CANCER METASTATIC
     Dosage: UNK
     Dates: start: 20130227, end: 20130415
  6. DEXAMETHASONE [Concomitant]
     Dosage: UNK
  7. LEVOTHYROXINE [Concomitant]
     Dosage: UNK
  8. LISINOPRIL [Concomitant]
     Dosage: UNK
  9. PROCHLORPERAZINE [Concomitant]
     Dosage: UNK
  10. BENADRYL [Concomitant]
     Dosage: UNK
  11. FOLIC ACID [Concomitant]
     Dosage: UNK
  12. METHOTREXATE [Concomitant]
     Dosage: UNK

REACTIONS (2)
  - Gastritis [Recovered/Resolved]
  - Urinary tract infection [Recovered/Resolved]
